FAERS Safety Report 17462673 (Version 2)
Quarter: 2020Q2

REPORT INFORMATION
  Report Type: Spontaneous
  Country: GB (occurrence: GB)
  Receive Date: 20200226
  Receipt Date: 20200410
  Transmission Date: 20200713
  Serious: Yes (Other)
  Sender: FDA-Public Use
  Company Number: GB-DRREDDYS-GER/UKI/20/0119923

PATIENT
  Age: 66 Year
  Sex: Female

DRUGS (7)
  1. LEVOTHYROXINE. [Suspect]
     Active Substance: LEVOTHYROXINE
     Indication: PRODUCT USED FOR UNKNOWN INDICATION
     Dosage: STRENGTH: 50 MCG
  2. BISOPROLOL [Suspect]
     Active Substance: BISOPROLOL
     Indication: PRODUCT USED FOR UNKNOWN INDICATION
     Dosage: STRENGTH: 5 MG
  3. OMEPRAZOLE. [Suspect]
     Active Substance: OMEPRAZOLE
     Indication: PRODUCT USED FOR UNKNOWN INDICATION
     Dosage: STRENGTH: 20 MG
  4. RAMIPRIL. [Suspect]
     Active Substance: RAMIPRIL
     Indication: PRODUCT USED FOR UNKNOWN INDICATION
     Dosage: STRENGTH: 5 MG
  5. METFORMIN [Suspect]
     Active Substance: METFORMIN HYDROCHLORIDE
     Indication: PRODUCT USED FOR UNKNOWN INDICATION
     Dosage: STRENGTH: 500 MG
  6. LEVOTHYROXINE SODIUM. [Suspect]
     Active Substance: LEVOTHYROXINE SODIUM
     Indication: PRODUCT USED FOR UNKNOWN INDICATION
     Dosage: STRENGTH:25 MCG
  7. ASPIRIN. [Suspect]
     Active Substance: ASPIRIN
     Indication: PRODUCT USED FOR UNKNOWN INDICATION
     Dosage: STRENGTH: 75 MG

REACTIONS (8)
  - Product dispensing error [Unknown]
  - Blood pressure systolic increased [Unknown]
  - Vision blurred [Unknown]
  - Product storage error [Unknown]
  - Malaise [Unknown]
  - Nausea [Unknown]
  - Headache [Unknown]
  - Product blister packaging issue [Unknown]

NARRATIVE: CASE EVENT DATE: 20200107
